FAERS Safety Report 14842392 (Version 1)
Quarter: 2018Q2

REPORT INFORMATION
  Report Type: Spontaneous
  Country: FR (occurrence: FR)
  Receive Date: 20180503
  Receipt Date: 20180503
  Transmission Date: 20180711
  Serious: Yes (Other)
  Sender: FDA-Public Use
  Company Number: FR-MERCK KGAA-2047112

PATIENT
  Age: 48 Year
  Sex: Male

DRUGS (1)
  1. NOVOTHYROX [Suspect]
     Active Substance: LEVOTHYROXINE SODIUM
     Indication: PRODUCT USED FOR UNKNOWN INDICATION

REACTIONS (33)
  - Loss of personal independence in daily activities [None]
  - Weight increased [None]
  - Fatigue [None]
  - Nocturia [None]
  - Dysuria [None]
  - Hyperhidrosis [None]
  - Palpitations [None]
  - Muscle spasms [None]
  - Wound [None]
  - Apathy [None]
  - Musculoskeletal pain [None]
  - Constipation [None]
  - Cold sweat [None]
  - Self esteem decreased [None]
  - Somnolence [None]
  - Musculoskeletal disorder [None]
  - Libido disorder [None]
  - Feeling of body temperature change [None]
  - Gastrointestinal disorder [None]
  - Feeling guilty [None]
  - Social avoidant behaviour [None]
  - Feeling abnormal [None]
  - Depression [None]
  - Diarrhoea [None]
  - Erysipelas [None]
  - Dizziness [None]
  - Migraine [None]
  - Emotional distress [None]
  - Feeling drunk [None]
  - Personal relationship issue [None]
  - Sleep disorder [None]
  - Pollakiuria [None]
  - Psychogenic erectile dysfunction [None]

NARRATIVE: CASE EVENT DATE: 201705
